FAERS Safety Report 21361142 (Version 3)
Quarter: 2022Q4

REPORT INFORMATION
  Report Type: Spontaneous
  Country: JP (occurrence: JP)
  Receive Date: 20220921
  Receipt Date: 20221129
  Transmission Date: 20230113
  Serious: Yes (Other)
  Sender: FDA-Public Use
  Company Number: JP-ELI_LILLY_AND_COMPANY-JP202208011038

PATIENT
  Age: 77 Year
  Sex: Female

DRUGS (3)
  1. RETEVMO [Suspect]
     Active Substance: SELPERCATINIB
     Indication: Non-small cell lung cancer
     Dosage: 320 MG, UNKNOWN
     Route: 048
     Dates: start: 20220802, end: 20220824
  2. RETEVMO [Suspect]
     Active Substance: SELPERCATINIB
     Dosage: 80 UNK
     Route: 048
     Dates: start: 20221003
  3. AMLODIPINE [Suspect]
     Active Substance: AMLODIPINE BESYLATE
     Indication: Hypertension
     Dosage: 5 MG
     Route: 048
     Dates: start: 20220802

REACTIONS (9)
  - Cholecystitis [Recovered/Resolved]
  - Leukopenia [Recovered/Resolved]
  - Gamma-glutamyltransferase increased [Recovering/Resolving]
  - Hyponatraemia [Recovered/Resolved]
  - Erythema [Recovered/Resolved]
  - Back pain [Recovered/Resolved]
  - Dry mouth [Recovered/Resolved]
  - Hypertension [Recovered/Resolved]
  - Thrombocytopenia [Recovered/Resolved]

NARRATIVE: CASE EVENT DATE: 20220824
